FAERS Safety Report 21004961 (Version 1)
Quarter: 2022Q2

REPORT INFORMATION
  Report Type: Spontaneous
  Country: US (occurrence: None)
  Receive Date: 20220622
  Receipt Date: 20220622
  Transmission Date: 20220721
  Serious: No
  Sender: FDA-Public Use
  Company Number: None

PATIENT
  Age: 33 Year
  Sex: Female
  Weight: 56.25 kg

DRUGS (2)
  1. DIETARY SUPPLEMENT\HERBALS\MINERALS\VITAMINS [Suspect]
     Active Substance: DIETARY SUPPLEMENT\HERBALS\MINERALS\VITAMINS
     Indication: Anxiety
     Dates: start: 20220531, end: 20220531
  2. DIETARY SUPPLEMENT\HERBALS\MINERALS\VITAMINS [Suspect]
     Active Substance: DIETARY SUPPLEMENT\HERBALS\MINERALS\VITAMINS
     Indication: Stress

REACTIONS (2)
  - Vomiting [None]
  - Product formulation issue [None]

NARRATIVE: CASE EVENT DATE: 20220531
